FAERS Safety Report 6378791-2 (Version None)
Quarter: 2009Q3

REPORT INFORMATION
  Report Type: 
  Country: None (occurrence: None)
  Receive Date: 20090928
  Receipt Date: 20090921
  Transmission Date: 20100115
  Serious: Yes (Hospitalization, Other)
  Sender: FDA-Public Use
  Company Number: TH-BRISTOL-MYERS SQUIBB COMPANY-14646160

PATIENT
  Age: 32 Year
  Sex: Female
  Weight: 45 kg

DRUGS (7)
  1. CETUXIMAB [Suspect]
     Indication: SQUAMOUS CELL CARCINOMA OF THE CERVIX
     Route: 042
     Dates: start: 20090223, end: 20090316
  2. CISPLATIN [Suspect]
     Indication: SQUAMOUS CELL CARCINOMA OF THE CERVIX
     Dosage: CYC 3:16MAR09
     Route: 042
     Dates: start: 20090223, end: 20090316
  3. RADIOTHERAPY [Suspect]
     Indication: SQUAMOUS CELL CARCINOMA OF THE CERVIX
     Dosage: 1 DF = 2 GY/F
     Dates: start: 20090302, end: 20090324
  4. BUSCOPAN [Concomitant]
     Indication: PAIN
     Dosage: 1X3PC
     Route: 048
     Dates: start: 20090316, end: 20090320
  5. MST [Concomitant]
     Indication: PAIN
     Route: 048
     Dates: start: 20090316, end: 20090320
  6. ONDANSETRON [Concomitant]
     Indication: NAUSEA
     Dosage: 1X3 AC
     Route: 048
     Dates: start: 20090316, end: 20090320
  7. ONDANSETRON [Concomitant]
     Indication: VOMITING
     Dosage: 1X3 AC
     Route: 048
     Dates: start: 20090316, end: 20090320

REACTIONS (7)
  - DERMATITIS ACNEIFORM [None]
  - DIARRHOEA [None]
  - ENTEROCOLITIS INFECTIOUS [None]
  - INTESTINAL OBSTRUCTION [None]
  - NAUSEA [None]
  - PELVIC INFECTION [None]
  - VOMITING [None]
